FAERS Safety Report 16209276 (Version 1)
Quarter: 2019Q2

REPORT INFORMATION
  Report Type: Spontaneous
  Country: PL (occurrence: PL)
  Receive Date: 20190417
  Receipt Date: 20190417
  Transmission Date: 20190711
  Serious: Yes (Death)
  Sender: FDA-Public Use
  Company Number: PL-ABBVIE-19K-129-2748352-00

PATIENT
  Sex: Male

DRUGS (7)
  1. VENCLYXTO [Suspect]
     Active Substance: VENETOCLAX
     Route: 048
  2. VENCLYXTO [Suspect]
     Active Substance: VENETOCLAX
     Route: 048
  3. VENCLYXTO [Suspect]
     Active Substance: VENETOCLAX
     Route: 048
  4. VENCLYXTO [Suspect]
     Active Substance: VENETOCLAX
     Indication: DIFFUSE LARGE B-CELL LYMPHOMA REFRACTORY
     Route: 048
  5. VENCLYXTO [Suspect]
     Active Substance: VENETOCLAX
     Route: 048
  6. VENCLYXTO [Suspect]
     Active Substance: VENETOCLAX
     Route: 048
  7. VENCLYXTO [Suspect]
     Active Substance: VENETOCLAX
     Route: 048

REACTIONS (9)
  - Diffuse large B-cell lymphoma refractory [Fatal]
  - Staphylococcal bacteraemia [Fatal]
  - Escherichia bacteraemia [Fatal]
  - Parvovirus B19 infection [Unknown]
  - Acinetobacter bacteraemia [Fatal]
  - Enterococcal bacteraemia [Fatal]
  - Bacterial sepsis [Fatal]
  - Diffuse large B-cell lymphoma [Fatal]
  - Septic shock [Fatal]

NARRATIVE: CASE EVENT DATE: 2018
